FAERS Safety Report 4336180-6 (Version None)
Quarter: 2004Q2

REPORT INFORMATION
  Report Type: 
  Country: None (occurrence: None)
  Receive Date: 20040407
  Receipt Date: 21000330
  Transmission Date: 20050107
  Serious: Yes (Other)
  Sender: FDA-Public Use
  Company Number: 4HQWYE243630MAR04

PATIENT
  Sex: Female

DRUGS (2)
  1. CORDARONE [Suspect]
  2. NEVIRAPINE (NEVIRAPINE) [Suspect]

REACTIONS (4)
  - DELUSION [None]
  - DRUG INTERACTION [None]
  - FEELING ABNORMAL [None]
  - PARANOIA [None]
